FAERS Safety Report 4379582-4 (Version None)
Quarter: 2004Q2

REPORT INFORMATION
  Report Type: 
  Country: None (occurrence: None)
  Receive Date: 20040415
  Receipt Date: 20040225
  Transmission Date: 20050107
  Serious: No
  Sender: FDA-Public Use
  Company Number: 2003-07-3837

PATIENT
  Age: 51 Year
  Sex: Male
  Weight: 71.6683 kg

DRUGS (1)
  1. CLARINEX [Suspect]
     Indication: RHINITIS
     Dosage: 10 MG QD ORAL
     Route: 048

REACTIONS (6)
  - DYSGEUSIA [None]
  - DYSPEPSIA [None]
  - EPISTAXIS [None]
  - ERUCTATION [None]
  - NASAL DRYNESS [None]
  - OVERDOSE [None]
